FAERS Safety Report 5604779-2 (Version None)
Quarter: 2008Q1

REPORT INFORMATION
  Report Type: 
  Country: None (occurrence: None)
  Receive Date: 20080128
  Receipt Date: 20080117
  Transmission Date: 20080703
  Serious: Yes (Hospitalization)
  Sender: FDA-Public Use
  Company Number: GB-ROCHE-542383

PATIENT
  Sex: Female

DRUGS (1)
  1. ORLISTAT [Suspect]
     Indication: DRUG USE FOR UNKNOWN INDICATION
     Route: 065
     Dates: start: 20070901

REACTIONS (5)
  - BLOOD CALCIUM DECREASED [None]
  - BLOOD POTASSIUM DECREASED [None]
  - MAGNESIUM DEFICIENCY [None]
  - PNEUMONIA [None]
  - VITAMIN D DEFICIENCY [None]
